FAERS Safety Report 13867372 (Version 1)
Quarter: 2017Q3

REPORT INFORMATION
  Report Type: Spontaneous
  Country: US (occurrence: None)
  Receive Date: 20170814
  Receipt Date: 20170814
  Transmission Date: 20171127
  Serious: No
  Sender: FDA-Public Use
  Company Number: None

PATIENT
  Sex: Male

DRUGS (1)
  1. REMICADE [Suspect]
     Active Substance: INFLIXIMAB
     Indication: CROHN^S DISEASE
     Dosage: 345MG AT WEEK 0,2 AND 6 INTRAVENOUSLY
     Route: 042
     Dates: start: 20160812

REACTIONS (4)
  - Libido decreased [None]
  - Mood swings [None]
  - Dyspnoea [None]
  - Flushing [None]
